FAERS Safety Report 25256901 (Version 1)
Quarter: 2025Q2

REPORT INFORMATION
  Report Type: Spontaneous
  Country: US (occurrence: None)
  Receive Date: 20250430
  Receipt Date: 20250430
  Transmission Date: 20250717
  Serious: Yes (Other)
  Sender: FDA-CTU
  Company Number: None

PATIENT
  Age: 69 Year
  Sex: Female
  Weight: 57.8 kg

DRUGS (1)
  1. UBRELVY [Suspect]
     Active Substance: UBROGEPANT
     Indication: Migraine
     Route: 048
     Dates: start: 20241125, end: 20250220

REACTIONS (2)
  - Hyperaesthesia teeth [None]
  - Root canal infection [None]

NARRATIVE: CASE EVENT DATE: 20250402
